FAERS Safety Report 7478742-3 (Version None)
Quarter: 2011Q2

REPORT INFORMATION
  Report Type: 
  Country: None (occurrence: None)
  Receive Date: 20110513
  Receipt Date: 20110503
  Transmission Date: 20111010
  Serious: Yes (Other)
  Sender: FDA-Public Use
  Company Number: US-BAYER-2011-038200

PATIENT
  Sex: Female

DRUGS (1)
  1. MIRENA [Suspect]
     Dosage: 20 ?G, CONT
     Route: 015

REACTIONS (5)
  - MEMORY IMPAIRMENT [None]
  - SUICIDAL IDEATION [None]
  - HEADACHE [None]
  - MENTAL DISORDER [None]
  - DYSPAREUNIA [None]
